FAERS Safety Report 9699023 (Version 2)
Quarter: 2013Q4

REPORT INFORMATION
  Report Type: Spontaneous
  Country: US (occurrence: None)
  Receive Date: 20131118
  Receipt Date: 20131220
  Transmission Date: 20140711
  Serious: Yes (Other)
  Sender: FDA-Public Use
  Company Number: 2013SA116180

PATIENT
  Age: 71 Year
  Sex: Female

DRUGS (6)
  1. SELSUN BLUE DEEP CLEANSING MICRO-BEAD SCRUB [Suspect]
     Indication: DANDRUFF
     Dates: start: 20130820, end: 20131101
  2. HYDROCODONE [Concomitant]
  3. INSULIN [Concomitant]
  4. POTASSIUM [Concomitant]
  5. COREG [Concomitant]
  6. COZAAR [Concomitant]

REACTIONS (2)
  - Alopecia [None]
  - Hypersensitivity [None]
